FAERS Safety Report 23973381 (Version 2)
Quarter: 2024Q3

REPORT INFORMATION
  Report Type: Spontaneous
  Country: GB (occurrence: GB)
  Receive Date: 20240613
  Receipt Date: 20240801
  Transmission Date: 20241017
  Serious: Yes (Other)
  Sender: REGENERON
  Company Number: GB-REGENERON PHARMACEUTICALS, INC.-2024-084338

PATIENT
  Age: 61 Year
  Sex: Male

DRUGS (1)
  1. LIBTAYO [Suspect]
     Active Substance: CEMIPLIMAB-RWLC
     Indication: Product used for unknown indication
     Dosage: UNK
     Dates: start: 202207, end: 202309

REACTIONS (3)
  - Tumour pseudoprogression [Unknown]
  - Undifferentiated spondyloarthritis [Unknown]
  - Colitis [Unknown]

NARRATIVE: CASE EVENT DATE: 20230901
